FAERS Safety Report 5570179-7 (Version None)
Quarter: 2007Q4

REPORT INFORMATION
  Report Type: 
  Country: None (occurrence: None)
  Receive Date: 20071220
  Receipt Date: 20071208
  Transmission Date: 20080405
  Serious: Yes (Hospitalization, Other)
  Sender: FDA-Public Use
  Company Number: US-PFIZER INC-2007103773

PATIENT
  Age: 78 Year
  Sex: Male
  Weight: 113.63 kg

DRUGS (2)
  1. XANAX [Suspect]
     Indication: ANXIETY
     Dosage: TEXT:6MG-FREQ:ONCE
     Dates: start: 20071207, end: 20071207
  2. XANAX [Suspect]
     Indication: CLAUSTROPHOBIA

REACTIONS (10)
  - ASTHENIA [None]
  - COMA [None]
  - CONFUSIONAL STATE [None]
  - DYSARTHRIA [None]
  - DYSPNOEA [None]
  - GAIT DISTURBANCE [None]
  - HYPERSOMNIA [None]
  - LIVER DISORDER [None]
  - NAUSEA [None]
  - RENAL DISORDER [None]
